FAERS Safety Report 7551743-2 (Version None)
Quarter: 2011Q2

REPORT INFORMATION
  Report Type: 
  Country: None (occurrence: None)
  Receive Date: 20110616
  Receipt Date: 20101005
  Transmission Date: 20111010
  Serious: Yes (Hospitalization)
  Sender: FDA-Public Use
  Company Number: A0886513A

PATIENT
  Age: 58 Year
  Sex: Male
  Weight: 97.7 kg

DRUGS (2)
  1. AVANDAMET [Suspect]
     Route: 048
     Dates: start: 20050720, end: 20060305
  2. AVANDIA [Suspect]
     Route: 048
     Dates: start: 20060305, end: 20070801

REACTIONS (5)
  - PERIPHERAL VASCULAR DISORDER [None]
  - MYOCARDIAL ISCHAEMIA [None]
  - SUPRAVENTRICULAR TACHYCARDIA [None]
  - CORONARY ARTERY DISEASE [None]
  - CARDIOVASCULAR DISORDER [None]
